FAERS Safety Report 4587214-5 (Version None)
Quarter: 2005Q1

REPORT INFORMATION
  Report Type: 
  Country: None (occurrence: None)
  Receive Date: 20050218
  Receipt Date: 20050215
  Transmission Date: 20050727
  Serious: Yes (Other)
  Sender: FDA-Public Use
  Company Number: US-GLAXOSMITHKLINE-A0545697A

PATIENT
  Age: 60 Year
  Sex: Female

DRUGS (9)
  1. PAXIL [Suspect]
     Indication: PAIN MANAGEMENT
     Dosage: 20MG PER DAY
     Route: 048
  2. BELLADONNA [Concomitant]
  3. HUMIBID [Concomitant]
  4. PRILOSEC [Concomitant]
  5. PANCREATIC ENZYMES [Concomitant]
  6. NIFEREX FORTE [Concomitant]
  7. PREDNISOLONE [Concomitant]
  8. ACIDOPHILUS [Concomitant]
  9. LEVAQUIN [Concomitant]

REACTIONS (5)
  - BILIARY TRACT DISORDER [None]
  - INSOMNIA [None]
  - OESOPHAGEAL SPASM [None]
  - PANCREATITIS CHRONIC [None]
  - SOMNOLENCE [None]
